FAERS Safety Report 6465085-X (Version None)
Quarter: 2009Q4

REPORT INFORMATION
  Report Type: 
  Country: None (occurrence: None)
  Receive Date: 20091104
  Receipt Date: 20091029
  Transmission Date: 20100525
  Serious: Yes (Hospitalization)
  Sender: FDA-Public Use
  Company Number: 2009GR_BP3374

PATIENT

DRUGS (11)
  1. TERBINAFINE HCL [Suspect]
     Indication: ONYCHOMYCOSIS
     Dosage: 250 MG ORAL
     Route: 048
     Dates: start: 20090906
  2. BISOPROLOL [Concomitant]
  3. LANSOPRAZOLE [Concomitant]
  4. MORPHINE [Concomitant]
  5. PREGABALIN [Concomitant]
  6. QUININE [Concomitant]
  7. SIMVASTATIN [Concomitant]
  8. TENOXICAM [Concomitant]
  9. TRAMADOL (TRAMADOL-HYDROCHLORID) [Concomitant]
  10. CIPROFLOXACIN [Concomitant]
  11. METRONIDAZOLE [Concomitant]

REACTIONS (2)
  - DIVERTICULUM [None]
  - PANCREATITIS [None]
